FAERS Safety Report 4325011-6 (Version None)
Quarter: 2004Q1

REPORT INFORMATION
  Report Type: 
  Country: None (occurrence: None)
  Receive Date: 20040326
  Receipt Date: 20040326
  Transmission Date: 20041129
  Serious: Yes (Disabling)
  Sender: FDA-Public Use
  Company Number: None

PATIENT
  Sex: Male
  Weight: 78.4723 kg

DRUGS (1)
  1. ZOLOFT [Suspect]
     Indication: DEPRESSION
     Dosage: DAILY ORAL
     Route: 048
     Dates: start: 19990526, end: 20000101

REACTIONS (5)
  - FACE OEDEMA [None]
  - FATIGUE [None]
  - MEMORY IMPAIRMENT [None]
  - MYALGIA [None]
  - PENILE SIZE REDUCED [None]
